FAERS Safety Report 8831919 (Version 1)
Quarter: 2012Q4

REPORT INFORMATION
  Report Type: 
  Country: US (occurrence: US)
  Receive Date: 20121009
  Receipt Date: 20121009
  Transmission Date: 20130627
  Serious: No
  Sender: FDA-Public Use
  Company Number: US-BAYER-2012-104791

PATIENT
  Age: 76 Year
  Sex: Female
  Weight: 63 kg

DRUGS (14)
  1. ALEVE CAPLET/TABLET,MIDOL EXTENDED RELIEF CAPLET [Suspect]
     Indication: BACK PAIN
     Dosage: 1 DF, PRN
     Route: 048
  2. BAYER ASPIRIN REGIMEN REGULAR 325 MG STRENGTH [Concomitant]
     Indication: ISCHAEMIC HEART DISEASE PROPHYLAXIS
  3. LISINOPRIL [Concomitant]
  4. RANITIDINE [Concomitant]
  5. SIMVASTATIN [Concomitant]
  6. CENTRUM [Concomitant]
  7. LEVOXYL [Concomitant]
  8. PRESERVISION EYE VITAMIN AND MINERAL SUPPL. [Concomitant]
  9. VITAMIN D [Concomitant]
  10. DOC Q LACE [Concomitant]
  11. TRAMADOL [Concomitant]
  12. FISH OIL [Concomitant]
  13. MAGNESIUM OXIDE [Concomitant]
  14. GABAPENTIN [Concomitant]

REACTIONS (1)
  - Back pain [None]
